FAERS Safety Report 18308637 (Version 1)
Quarter: 2020Q3

REPORT INFORMATION
  Report Type: Spontaneous
  Country: GB (occurrence: GB)
  Receive Date: 20200924
  Receipt Date: 20200924
  Transmission Date: 20201103
  Serious: Yes (Other)
  Sender: FDA-Public Use
  Company Number: GB-MYLANLABS-2020M1080644

PATIENT
  Age: 78 Year
  Sex: Male

DRUGS (20)
  1. SUSCARD [Concomitant]
     Active Substance: NITROGLYCERIN
     Indication: ANGINA PECTORIS
     Dosage: 3 MG, UNK
     Route: 060
  2. LISINOPRIL. [Concomitant]
     Active Substance: LISINOPRIL
     Dosage: 2.5 MG, 1X/DAY
  3. CHLORPHENIRAMINE                   /00072502/ [Suspect]
     Active Substance: CHLORPHENIRAMINE MALEATE
     Indication: SWOLLEN TONGUE
  4. ATENOLOL. [Concomitant]
     Active Substance: ATENOLOL
     Dosage: 100 MG, 1X/DAY
  5. SODIUM NITRATE. [Concomitant]
     Active Substance: SODIUM NITRATE
     Indication: ISCHAEMIA
     Dosage: UNK
     Route: 042
  6. ENOXAPARIN [Concomitant]
     Active Substance: ENOXAPARIN
     Indication: ISCHAEMIA
     Dosage: 1 MG/KG BODY WEIGHT, 2X/DAY
     Route: 058
  7. CHLORPHENIRAMINE                   /00072502/ [Suspect]
     Active Substance: CHLORPHENIRAMINE MALEATE
     Indication: ANGIOEDEMA
     Dosage: 10 MG, UNK
     Route: 042
  8. HYDROCORTISONE. [Suspect]
     Active Substance: HYDROCORTISONE
     Indication: ANGIOEDEMA
  9. DIAMORPHINE [Concomitant]
     Active Substance: DIAMORPHINE
     Indication: PAIN
     Dosage: UNK
  10. ACETYLSALICYLIC ACID [Concomitant]
     Active Substance: ASPIRIN
     Dosage: 75 MG, 1X/DAY
  11. CYCLIZINE [Concomitant]
     Active Substance: CYCLIZINE
     Dosage: 50 MG, 3X/DAY
  12. ISOSORBIDE MONONITRATE. [Concomitant]
     Active Substance: ISOSORBIDE MONONITRATE
     Dosage: 40 MG, 2X/DAY
  13. AMLODIPINE [Concomitant]
     Active Substance: AMLODIPINE BESYLATE
     Dosage: 10 MG, 1X/DAY
  14. HYDROCORTISONE. [Suspect]
     Active Substance: HYDROCORTISONE
     Indication: SWOLLEN TONGUE
     Dosage: 200 MG, UNK
     Route: 042
  15. FRUSEMIDE                          /00032601/ [Concomitant]
     Active Substance: FUROSEMIDE
     Dosage: 40 MG, 1X/DAY
  16. FOSFESTROL TETRASODIUM [Concomitant]
     Dosage: 120 MG, 2X/DAY
  17. OXYGEN. [Concomitant]
     Active Substance: OXYGEN
     Indication: SWOLLEN TONGUE
     Dosage: UNK
  18. GOSERELIN [Concomitant]
     Active Substance: GOSERELIN
     Dosage: UNK, EVERY 3 MONTHS (BY INJECTION)
  19. ACETYLSALICYLIC ACID [Concomitant]
     Active Substance: ASPIRIN
     Dosage: 300 MG, UNK
  20. OXYGEN. [Concomitant]
     Active Substance: OXYGEN
     Indication: ANGIOEDEMA

REACTIONS (1)
  - Drug ineffective [Unknown]
